FAERS Safety Report 16286536 (Version 8)
Quarter: 2022Q2

REPORT INFORMATION
  Report Type: Spontaneous
  Country: US (occurrence: US)
  Receive Date: 20190508
  Receipt Date: 20220511
  Transmission Date: 20220720
  Serious: No
  Sender: FDA-Public Use
  Company Number: US-PFIZER INC-2016585254

PATIENT
  Age: 67 Year
  Sex: Female
  Weight: 61 kg

DRUGS (6)
  1. RAPAMUNE [Suspect]
     Active Substance: SIROLIMUS
     Indication: Liver transplant
     Dosage: 2 MG
     Dates: start: 2004
  2. RAPAMUNE [Suspect]
     Active Substance: SIROLIMUS
     Dosage: 1 MG, 2X/DAY (TWO TIMES A DAY BEFORE MEALS)
     Route: 048
  3. RAPAMUNE [Suspect]
     Active Substance: SIROLIMUS
     Dosage: 1 MG, 2X/DAY [TWO TIMES A DAY (BEFORE MEALS)]
     Route: 048
     Dates: start: 20190227
  4. RAPAMUNE [Suspect]
     Active Substance: SIROLIMUS
     Dosage: UNK , 2X/DAY
  5. RAPAMUNE [Suspect]
     Active Substance: SIROLIMUS
     Dosage: 1 MG, 2X/DAY (1 MG 90 DAY SUPPLY, TAKE 1 TABLET BY MOUTH 2 TIMES DAILY, QUANTITY 90)
     Route: 048
  6. RAPAMUNE [Suspect]
     Active Substance: SIROLIMUS
     Dosage: 1 MG, DAILY
     Route: 048

REACTIONS (3)
  - Off label use [Unknown]
  - Visual impairment [Unknown]
  - Off label use [Unknown]

NARRATIVE: CASE EVENT DATE: 20040101
